FAERS Safety Report 11623199 (Version 1)
Quarter: 2015Q4

REPORT INFORMATION
  Report Type: Spontaneous
  Country: US (occurrence: US)
  Receive Date: 20151013
  Receipt Date: 20151013
  Transmission Date: 20160304
  Serious: No
  Sender: FDA-Public Use
  Company Number: US-JNJFOC-20150423965

PATIENT
  Sex: Female
  Weight: 67.59 kg

DRUGS (1)
  1. TYLENOL REGULAR STRENGTH [Suspect]
     Active Substance: ACETAMINOPHEN
     Indication: CANCER PAIN
     Dosage: 1-1.5 TABLETS
     Route: 048

REACTIONS (4)
  - Drug ineffective for unapproved indication [Unknown]
  - Product use issue [Unknown]
  - Product closure removal difficult [Unknown]
  - Wrong technique in product usage process [Unknown]
